FAERS Safety Report 5123802-5 (Version None)
Quarter: 2006Q3

REPORT INFORMATION
  Report Type: 
  Country: None (occurrence: None)
  Receive Date: 20060811
  Receipt Date: 20060518
  Transmission Date: 20061208
  Serious: No
  Sender: FDA-Public Use
  Company Number: 200614756US

PATIENT

DRUGS (1)
  1. APIDRA [Suspect]

REACTIONS (3)
  - BLOOD GLUCOSE INCREASED [None]
  - RASH [None]
  - TREMOR [None]
